FAERS Safety Report 5164028-9 (Version None)
Quarter: 2006Q4

REPORT INFORMATION
  Report Type: 
  Country: None (occurrence: None)
  Receive Date: 20061204
  Receipt Date: 20060929
  Transmission Date: 20070319
  Serious: Yes (Death, Life-Threatening, Hospitalization)
  Sender: FDA-Public Use
  Company Number: ZA-ROXANE LABORATORIES, INC-2006-BP-11468RO

PATIENT
  Sex: Female

DRUGS (3)
  1. LITHIUM CARBONATE [Suspect]
     Indication: MANIA
     Dosage: 750 MG DAILY
     Route: 048
     Dates: start: 20050808, end: 20060906
  2. ARIPIPRAZOLE [Suspect]
     Indication: MANIA
     Dosage: 30 MG DAILY
     Route: 048
     Dates: start: 20051018, end: 20060906
  3. FLUNITRAZEPAM [Concomitant]
     Dates: start: 20060901, end: 20060906

REACTIONS (31)
  - ACUTE PULMONARY OEDEMA [None]
  - ARRHYTHMIA [None]
  - BILIRUBIN CONJUGATED INCREASED [None]
  - BLOOD ALBUMIN DECREASED [None]
  - BLOOD ALKALINE PHOSPHATASE INCREASED [None]
  - BLOOD BILIRUBIN INCREASED [None]
  - BLOOD CALCIUM DECREASED [None]
  - BLOOD CREATINE PHOSPHOKINASE INCREASED [None]
  - BLOOD LACTIC ACID DECREASED [None]
  - BLOOD MAGNESIUM DECREASED [None]
  - BLOOD PHOSPHORUS DECREASED [None]
  - BLOOD POTASSIUM DECREASED [None]
  - BRADYCARDIA [None]
  - CARDIAC FAILURE [None]
  - DEPENDENCE ON RESPIRATOR [None]
  - HAEMATOCRIT DECREASED [None]
  - HAEMOGLOBIN DECREASED [None]
  - HYPOTENSION [None]
  - HYPOVENTILATION [None]
  - LYMPHOCYTE COUNT INCREASED [None]
  - MONOCYTE COUNT INCREASED [None]
  - NEUTROPHIL COUNT INCREASED [None]
  - OVERDOSE [None]
  - PROTEIN TOTAL DECREASED [None]
  - RED BLOOD CELL COUNT DECREASED [None]
  - RESPIRATORY FAILURE [None]
  - SLEEP APNOEA SYNDROME [None]
  - SYNCOPE [None]
  - URINE KETONE BODY PRESENT [None]
  - URINE SODIUM INCREASED [None]
  - WEIGHT INCREASED [None]
